FAERS Safety Report 9003690 (Version 1)
Quarter: 2013Q1

REPORT INFORMATION
  Report Type: Spontaneous
  Country: US (occurrence: US)
  Receive Date: 20130108
  Receipt Date: 20130108
  Transmission Date: 20140127
  Serious: No
  Sender: FDA-Public Use
  Company Number: US-GLAXOSMITHKLINE-A0961979A

PATIENT
  Age: 73 Year
  Sex: Male

DRUGS (6)
  1. LOVAZA [Suspect]
     Indication: BLOOD TRIGLYCERIDES INCREASED
     Dosage: 4CAP TWICE PER DAY
     Route: 048
     Dates: start: 2011
  2. HEART MEDICATION [Concomitant]
  3. ANTIDEPRESSANT [Concomitant]
  4. VITAMINS [Concomitant]
  5. PRILOSEC [Concomitant]
  6. FLOMAX [Concomitant]

REACTIONS (1)
  - Drug ineffective [Unknown]
